FAERS Safety Report 10559880 (Version 1)
Quarter: 2014Q4

REPORT INFORMATION
  Report Type: Spontaneous
  Country: US (occurrence: None)
  Receive Date: 20141030
  Receipt Date: 20141030
  Transmission Date: 20150529
  Serious: Yes (Hospitalization)
  Sender: FDA-Public Use
  Company Number: US-017447

PATIENT
  Age: 72 Year
  Sex: Female
  Weight: 76.66 kg

DRUGS (2)
  1. PREPOPIK [Suspect]
     Active Substance: ANHYDROUS CITRIC ACID\MAGNESIUM OXIDE\SODIUM PICOSULFATE
     Indication: BOWEL PREPARATION
     Dosage: 1ST PACKET BEFORE 9:00PM ON 12 OCT 2014
     Dates: start: 20141012
  2. PREPOPIK [Suspect]
     Active Substance: ANHYDROUS CITRIC ACID\MAGNESIUM OXIDE\SODIUM PICOSULFATE
     Dates: start: 20141012

REACTIONS (3)
  - Drug ineffective [None]
  - Asthenia [None]
  - Abdominal discomfort [None]

NARRATIVE: CASE EVENT DATE: 20141013
